FAERS Safety Report 17509203 (Version 1)
Quarter: 2020Q1

REPORT INFORMATION
  Report Type: Spontaneous
  Country: US (occurrence: US)
  Receive Date: 20200306
  Receipt Date: 20200306
  Transmission Date: 20200409
  Serious: Yes (Hospitalization, Other)
  Sender: FDA-Public Use
  Company Number: US-009507513-2002USA009886

PATIENT
  Age: 64 Year
  Sex: Female
  Weight: 68.04 kg

DRUGS (5)
  1. METFORMIN [Suspect]
     Active Substance: METFORMIN HYDROCHLORIDE
     Indication: DIABETES MELLITUS
     Dosage: 3 DOSAGE FORM (3 PILLS)
     Route: 048
     Dates: start: 2019
  2. DILANTIN [Suspect]
     Active Substance: PHENYTOIN
     Indication: SEIZURE
     Dosage: 200 MILLIGRAM, BID  (200MG IN MORNING 200MG AT NIGHT)
     Route: 065
  3. DILANTIN [Suspect]
     Active Substance: PHENYTOIN
     Dosage: UNK (INCREASED DOSE)
     Route: 065
  4. COZAAR [Suspect]
     Active Substance: LOSARTAN POTASSIUM
     Indication: HYPERTENSION
     Dosage: UNK
  5. METFORMIN [Suspect]
     Active Substance: METFORMIN HYDROCHLORIDE
     Dosage: 1 DOSAGE FORM, HS (ONE PILL ONE TIME AT NIGHT)
     Route: 048
     Dates: start: 202001

REACTIONS (8)
  - Amnesia [Not Recovered/Not Resolved]
  - Weight decreased [Unknown]
  - Somnolence [Recovered/Resolved]
  - Depression [Recovering/Resolving]
  - Malaise [Unknown]
  - Asthenia [Recovered/Resolved]
  - Eating disorder [Unknown]
  - Seizure [Not Recovered/Not Resolved]

NARRATIVE: CASE EVENT DATE: 201901
